FAERS Safety Report 24263767 (Version 1)
Quarter: 2024Q3

REPORT INFORMATION
  Report Type: Spontaneous
  Country: DE (occurrence: DE)
  Receive Date: 20240829
  Receipt Date: 20240829
  Transmission Date: 20241017
  Serious: Yes (Life-Threatening, Disabling, Other)
  Sender: PFIZER
  Company Number: None

PATIENT
  Age: 69 Year
  Sex: Male

DRUGS (1)
  1. VYNDAQEL [Suspect]
     Active Substance: TAFAMIDIS MEGLUMINE
     Indication: Hereditary ATTR amyloid cardiomyopathy
     Dosage: UNK
     Dates: start: 2021, end: 2024

REACTIONS (1)
  - Non-small cell lung cancer metastatic [Recovered/Resolved with Sequelae]

NARRATIVE: CASE EVENT DATE: 20240101
